FAERS Safety Report 7306589-7 (Version None)
Quarter: 2011Q1

REPORT INFORMATION
  Report Type: 
  Country: None (occurrence: None)
  Receive Date: 20110222
  Receipt Date: 20110216
  Transmission Date: 20110831
  Serious: Yes (Other)
  Sender: FDA-Public Use
  Company Number: US-ROCHE-755623

PATIENT
  Sex: Male

DRUGS (11)
  1. MULTI-VITAMIN [Concomitant]
     Indication: VITAMIN SUPPLEMENTATION
     Dates: start: 20090901
  2. TELAPREVIR [Suspect]
     Indication: HEPATITIS C
     Route: 048
     Dates: start: 20100920, end: 20101214
  3. VITAMINE D [Concomitant]
     Indication: VITAMIN SUPPLEMENTATION
     Dosage: GENERIC NAME: ERGOCALCIFEROL.
     Dates: start: 20090901
  4. FISH OIL [Concomitant]
     Dates: start: 20090901
  5. RIBAVIRIN [Suspect]
     Indication: HEPATITIS C
     Route: 048
     Dates: start: 20101220, end: 20110203
  6. VX-222 [Suspect]
     Indication: HEPATITIS C
     Dosage: DAILY DOSE BLINDED
     Route: 048
     Dates: start: 20100920, end: 20101214
  7. POTASSIUM [Concomitant]
     Dates: start: 20090901
  8. CALCIUM [Concomitant]
     Dates: start: 20090901
  9. MAGNESIUM [Concomitant]
     Dates: start: 20090901
  10. RITALIN [Concomitant]
     Dosage: METHYLPHENIDATE HYDROCHLORIDE.
     Dates: start: 20101115
  11. PEGINTERFERON ALFA-2A [Suspect]
     Indication: HEPATITIS C
     Route: 058
     Dates: start: 20101220, end: 20110203

REACTIONS (1)
  - ANGINA UNSTABLE [None]
